FAERS Safety Report 20611523 (Version 1)
Quarter: 2022Q1

REPORT INFORMATION
  Report Type: Spontaneous
  Country: US (occurrence: None)
  Receive Date: 20220317
  Receipt Date: 20220317
  Transmission Date: 20220423
  Serious: Yes (Other)
  Sender: FDA-Public Use
  Company Number: None

PATIENT
  Age: 45 Year
  Sex: Male
  Weight: 115.65 kg

DRUGS (5)
  1. PEG-3350 AND ELECTROLYTES [Suspect]
     Active Substance: POLYETHYLENE GLYCOL 3350\POTASSIUM CHLORIDE\SODIUM BICARBONATE\SODIUM CHLORIDE\SODIUM SULFATE
     Indication: Bowel preparation
     Dosage: OTHER QUANTITY : 1 JUG;?FREQUENCY : AS NEEDED;?
     Route: 048
     Dates: start: 20220316, end: 20220317
  2. DEVICE [Concomitant]
     Active Substance: DEVICE
  3. ALBUTEROL [Concomitant]
     Active Substance: ALBUTEROL
  4. DULOXETINE [Concomitant]
     Active Substance: DULOXETINE
  5. FLONASE [Concomitant]
     Active Substance: FLUTICASONE PROPIONATE

REACTIONS (10)
  - Pruritus [None]
  - Skin burning sensation [None]
  - Erythema [None]
  - Peripheral swelling [None]
  - Lip swelling [None]
  - Eye swelling [None]
  - Chills [None]
  - Pyrexia [None]
  - Eye pain [None]
  - Adverse drug reaction [None]

NARRATIVE: CASE EVENT DATE: 20220316
